FAERS Safety Report 25487767 (Version 1)
Quarter: 2025Q2

REPORT INFORMATION
  Report Type: Report from Study
  Country: CA (occurrence: CA)
  Receive Date: 20250627
  Receipt Date: 20250627
  Transmission Date: 20250716
  Serious: Yes (Other)
  Sender: NOVARTIS
  Company Number: CA-002147023-NVSC2025CA101425

PATIENT
  Age: 64 Year
  Sex: Female

DRUGS (2)
  1. KISQALI [Suspect]
     Active Substance: RIBOCICLIB SUCCINATE
     Indication: Breast cancer metastatic
     Dosage: UNK, QD
     Route: 048
  2. KISQALI [Suspect]
     Active Substance: RIBOCICLIB SUCCINATE
     Dosage: 600 MG, QD (FOR 21 DAYS THEN OFF FOR 7 DAYS)
     Route: 048
     Dates: start: 20240525

REACTIONS (4)
  - Cataract [Unknown]
  - Neutrophil count decreased [Unknown]
  - Dizziness [Unknown]
  - White blood cell count decreased [Unknown]
